FAERS Safety Report 24463411 (Version 1)
Quarter: 2024Q4

REPORT INFORMATION
  Report Type: Report from Study
  Country: US (occurrence: US)
  Receive Date: 20241018
  Receipt Date: 20241018
  Transmission Date: 20250115
  Serious: No
  Sender: AGIOS PHARMACEUTICALS
  Company Number: US-AGIOS-2410US03919

PATIENT

DRUGS (1)
  1. MITAPIVAT [Suspect]
     Active Substance: MITAPIVAT
     Indication: Anaemia
     Dosage: 100 MILLIGRAM, QD
     Route: 048
     Dates: start: 20220528

REACTIONS (1)
  - Product use issue [Unknown]
